FAERS Safety Report 5415576-5 (Version None)
Quarter: 2007Q3

REPORT INFORMATION
  Report Type: 
  Country: None (occurrence: None)
  Receive Date: 20070815
  Receipt Date: 20070807
  Transmission Date: 20080115
  Serious: Yes (Other)
  Sender: FDA-Public Use
  Company Number: US-ALLERGAN-0708605US

PATIENT
  Sex: Female

DRUGS (3)
  1. ZYMAR [Suspect]
     Indication: PREOPERATIVE CARE
     Dosage: UNK, UNKNOWN
     Route: 047
     Dates: start: 20070623
  2. ZYMAR [Suspect]
     Indication: POSTOPERATIVE CARE
  3. PRED FORTE [Concomitant]
     Indication: POSTOPERATIVE CARE
     Dosage: UNK, UNKNOWN
     Route: 047

REACTIONS (1)
  - ENDOPHTHALMITIS [None]
